FAERS Safety Report 9717824 (Version 1)
Quarter: 2013Q4

REPORT INFORMATION
  Report Type: Spontaneous
  Country: US (occurrence: US)
  Receive Date: 20131125
  Receipt Date: 20131125
  Transmission Date: 20140711
  Serious: No
  Sender: FDA-Public Use
  Company Number: US-VIVUS-2012V1000247

PATIENT
  Age: 61 Year
  Sex: Female
  Weight: 113.05 kg

DRUGS (4)
  1. QSYMIA 3.75MG/23MG [Suspect]
     Indication: WEIGHT DECREASED
     Dosage: DAILY DOSE: 1 CAPSULE,
     Route: 048
     Dates: start: 201210, end: 20121105
  2. PRISTIQ [Concomitant]
     Indication: DEPRESSION
  3. XANAX [Concomitant]
     Indication: ANXIETY
  4. SAPHRIS [Concomitant]
     Indication: DEPRESSION

REACTIONS (1)
  - Depression [Not Recovered/Not Resolved]
